FAERS Safety Report 15076297 (Version 2)
Quarter: 2018Q4

REPORT INFORMATION
  Report Type: Spontaneous
  Country: US (occurrence: US)
  Receive Date: 20180627
  Receipt Date: 20181220
  Transmission Date: 20190204
  Serious: No
  Sender: FDA-Public Use
  Company Number: US-BAYER-2018-114268

PATIENT
  Sex: Male

DRUGS (1)
  1. CIPRO [Suspect]
     Active Substance: CIPROFLOXACIN HYDROCHLORIDE
     Dosage: 7 DF
     Dates: start: 201805

REACTIONS (17)
  - Joint noise [None]
  - Gait disturbance [None]
  - Balance disorder [None]
  - Loss of personal independence in daily activities [None]
  - Vision blurred [None]
  - Nausea [Recovered/Resolved]
  - Headache [None]
  - Vomiting [None]
  - Muscle spasms [Recovered/Resolved]
  - Cardiac disorder [None]
  - Tremor [None]
  - Psychiatric symptom [None]
  - Dyspnoea [None]
  - Bone pain [None]
  - Apathy [None]
  - Back pain [None]
  - Speech disorder [None]

NARRATIVE: CASE EVENT DATE: 201805
